FAERS Safety Report 4819047-6 (Version None)
Quarter: 2005Q4

REPORT INFORMATION
  Report Type: 
  Country: None (occurrence: None)
  Receive Date: 20051101
  Receipt Date: 20051101
  Transmission Date: 20060501
  Serious: Yes (Hospitalization)
  Sender: FDA-Public Use
  Company Number: None

PATIENT
  Age: 64 Year
  Sex: Male
  Weight: 82.3 kg

DRUGS (8)
  1. CYCLOPHOSPHAMIDE [Suspect]
     Indication: LYMPHOMA
     Dosage: SEE NARRATIVE
  2. DOXORUBICIN [Suspect]
     Dosage: SEE NARRATIVE
  3. ETOPOSIDE [Suspect]
     Dosage: SEE NARRATIVE
  4. PREDNISONE [Suspect]
     Dosage: SEE NARRATIVE
  5. I-131 TOSITUMOMAB [Suspect]
     Dosage: SEE NARRATIVE
  6. ACYCLOVIR [Concomitant]
  7. FLUCONAZOLE [Concomitant]
  8. ZYRTEC [Concomitant]

REACTIONS (1)
  - ACUTE LEUKAEMIA [None]
